FAERS Safety Report 17640242 (Version 1)
Quarter: 2020Q2

REPORT INFORMATION
  Report Type: Spontaneous
  Country: JP (occurrence: JP)
  Receive Date: 20200408
  Receipt Date: 20200408
  Transmission Date: 20200713
  Serious: Yes (Death, Hospitalization, Other)
  Sender: FDA-Public Use
  Company Number: JP-AMGEN-JPNSP2020056413

PATIENT
  Age: 83 Year
  Sex: Male

DRUGS (1)
  1. RANMARK [Suspect]
     Active Substance: DENOSUMAB
     Indication: BONE GIANT CELL TUMOUR
     Dosage: UNK
     Route: 065

REACTIONS (3)
  - Metastases to central nervous system [Fatal]
  - Bone giant cell tumour [Not Recovered/Not Resolved]
  - Metastases to lung [Not Recovered/Not Resolved]
